FAERS Safety Report 8839306 (Version 1)
Quarter: 2012Q4

REPORT INFORMATION
  Report Type: 
  Country: US (occurrence: US)
  Receive Date: 20121015
  Receipt Date: 20121015
  Transmission Date: 20130627
  Serious: Yes (Other)
  Sender: FDA-Public Use
  Company Number: US-GLAXOSMITHKLINE-A0987564A

PATIENT
  Age: 86 Year
  Sex: Male

DRUGS (5)
  1. DUAC [Suspect]
     Indication: ACNE
     Route: 061
  2. ASPIRIN [Concomitant]
  3. AVODART [Concomitant]
  4. TERAZOSIN [Concomitant]
  5. NEXIUM [Concomitant]

REACTIONS (3)
  - Pseudomembranous colitis [Unknown]
  - Diarrhoea [Unknown]
  - Haematochezia [Unknown]
